FAERS Safety Report 8186949-5 (Version None)
Quarter: 2012Q1

REPORT INFORMATION
  Report Type: 
  Country: None (occurrence: None)
  Receive Date: 20120306
  Receipt Date: 20120229
  Transmission Date: 20120608
  Serious: Yes (Death)
  Sender: FDA-Public Use
  Company Number: JP-SANOFI-AVENTIS-2011SA079364

PATIENT
  Age: 77 Year
  Sex: Male
  Weight: 73.4 kg

DRUGS (11)
  1. PLAVIX [Suspect]
     Dosage: MAINTENANCE TREATMENT
     Route: 065
     Dates: start: 20091012, end: 20100209
  2. LASIX [Concomitant]
     Route: 048
     Dates: start: 20091022, end: 20100209
  3. HEPARIN [Concomitant]
     Dosage: DOSE:10000 UNIT(S)
     Route: 042
     Dates: start: 20091013, end: 20091013
  4. HEPARIN [Concomitant]
     Dosage: DOSE:10000 UNIT(S)
     Route: 042
     Dates: start: 20091020, end: 20091020
  5. PIOGLITAZONE [Concomitant]
     Route: 048
     Dates: start: 20091103, end: 20100209
  6. ALL OTHER THERAPEUTIC PRODUCTS [Concomitant]
     Route: 048
     Dates: start: 20091208, end: 20100209
  7. EPLERENONE [Concomitant]
     Route: 048
     Dates: start: 20091022, end: 20100209
  8. AMARYL [Concomitant]
     Route: 048
     Dates: start: 20091218, end: 20100209
  9. ASPIRIN [Concomitant]
     Route: 048
     Dates: start: 20091012, end: 20100209
  10. LANSOPRAZOLE [Concomitant]
     Route: 048
     Dates: start: 20091012, end: 20100209
  11. LIPITOR [Concomitant]
     Route: 048
     Dates: start: 20091013, end: 20100209

REACTIONS (10)
  - PLATELET COUNT DECREASED [None]
  - HYPOTENSION [None]
  - DYSPNOEA [None]
  - GLYCOSYLATED HAEMOGLOBIN INCREASED [None]
  - BRADYCARDIA [None]
  - MULTI-ORGAN FAILURE [None]
  - BLOOD LACTATE DEHYDROGENASE INCREASED [None]
  - INTERSTITIAL LUNG DISEASE [None]
  - HAEMOGLOBIN DECREASED [None]
  - HAEMATOCRIT DECREASED [None]
